FAERS Safety Report 4540920-0 (Version None)
Quarter: 2004Q4

REPORT INFORMATION
  Report Type: 
  Country: None (occurrence: None)
  Receive Date: 20041229
  Receipt Date: 20041119
  Transmission Date: 20050328
  Serious: Yes (Hospitalization)
  Sender: FDA-Public Use
  Company Number: JP-GLAXOSMITHKLINE-B0357950A

PATIENT
  Age: 49 Year
  Sex: Male
  Weight: 53 kg

DRUGS (9)
  1. AUGMENTIN '125' [Suspect]
     Indication: SINUSITIS
     Dosage: 350MG TWICE PER DAY
     Route: 048
     Dates: start: 20041002, end: 20041008
  2. PL [Suspect]
     Indication: NASOPHARYNGITIS
     Dosage: 1G THREE TIMES PER DAY
     Route: 048
     Dates: start: 20040918, end: 20040922
  3. TOMIRON [Suspect]
     Indication: NASOPHARYNGITIS
     Dosage: 33.33MG THREE TIMES PER DAY
     Route: 048
     Dates: start: 20040918, end: 20040922
  4. CLARITH [Suspect]
     Indication: SINUSITIS
     Dosage: 200MG TWICE PER DAY
     Route: 048
     Dates: start: 20041009, end: 20041015
  5. URSODESOXYCHOLIC ACID [Suspect]
  6. NEUZYM [Concomitant]
     Indication: NASOPHARYNGITIS
     Dosage: 90MG PER DAY
     Route: 048
     Dates: start: 20040918, end: 20040922
  7. KETEK [Concomitant]
     Indication: SINUSITIS
     Dosage: 300MG PER DAY
     Route: 048
     Dates: start: 20040925, end: 20040929
  8. BIOFERMIN [Concomitant]
     Indication: SINUSITIS
     Dosage: 1UNIT PER DAY
     Route: 048
     Dates: start: 20041002, end: 20041008
  9. CLARITIN [Concomitant]
     Indication: SINUSITIS
     Dosage: 20MG PER DAY
     Route: 048
     Dates: start: 20041009, end: 20041015

REACTIONS (11)
  - ALANINE AMINOTRANSFERASE INCREASED [None]
  - ASPARTATE AMINOTRANSFERASE INCREASED [None]
  - BILIRUBIN CONJUGATED INCREASED [None]
  - BLOOD ALKALINE PHOSPHATASE INCREASED [None]
  - BLOOD BILIRUBIN INCREASED [None]
  - BLOOD LACTATE DEHYDROGENASE INCREASED [None]
  - GAMMA-GLUTAMYLTRANSFERASE INCREASED [None]
  - HEPATIC FUNCTION ABNORMAL [None]
  - MALAISE [None]
  - PALPITATIONS [None]
  - PRURITUS [None]
